FAERS Safety Report 17703019 (Version 1)
Quarter: 2020Q2

REPORT INFORMATION
  Report Type: Spontaneous
  Country: JP (occurrence: JP)
  Receive Date: 20200423
  Receipt Date: 20200423
  Transmission Date: 20200714
  Serious: Yes (Death, Hospitalization, Other)
  Sender: FDA-Public Use
  Company Number: JP-NOVOPROD-724307

PATIENT
  Age: 59 Year
  Sex: Male
  Weight: 53.5 kg

DRUGS (3)
  1. LEVEMIR [Suspect]
     Active Substance: INSULIN DETEMIR
     Dosage: UNK(EXTRA DOSE ADMINISTERED)
     Route: 058
  2. INSULIN ASPART [Suspect]
     Active Substance: INSULIN ASPART
     Indication: PANCREATOGENOUS DIABETES
     Dosage: 19 IU, QD(6-6-7)BEFORE THREE MEALS RESPECTIVELY
     Route: 058
  3. LEVEMIR [Suspect]
     Active Substance: INSULIN DETEMIR
     Indication: PANCREATOGENOUS DIABETES
     Dosage: 3 IU, QD(BEFORE DINNER)
     Route: 058

REACTIONS (4)
  - Pneumonia aspiration [Fatal]
  - Extra dose administered [Unknown]
  - Hypoglycaemic encephalopathy [Fatal]
  - Hypoglycaemia [Unknown]
